FAERS Safety Report 10150334 (Version 1)
Quarter: 2014Q2

REPORT INFORMATION
  Report Type: Spontaneous
  Country: KR (occurrence: KR)
  Receive Date: 20140502
  Receipt Date: 20140502
  Transmission Date: 20141212
  Serious: Yes (Other)
  Sender: FDA-Public Use
  Company Number: PHHY2014KR051340

PATIENT
  Age: 46 Year
  Sex: Female

DRUGS (1)
  1. TRIAMCINOLONE [Suspect]
     Indication: PAIN
     Dosage: 20 MG, UNK
     Route: 065

REACTIONS (8)
  - Nerve injury [Unknown]
  - Muscle atrophy [Recovered/Resolved]
  - Lipoatrophy [Recovered/Resolved]
  - Hypoaesthesia [Recovered/Resolved]
  - Pain [Recovered/Resolved]
  - Discomfort [Recovered/Resolved]
  - Skin hypopigmentation [Recovered/Resolved]
  - Skin depigmentation [Recovered/Resolved]
